FAERS Safety Report 7985804-0 (Version None)
Quarter: 2011Q4

REPORT INFORMATION
  Report Type: 
  Country: None (occurrence: None)
  Receive Date: 20111216
  Receipt Date: 20111213
  Transmission Date: 20120403
  Serious: Yes (Hospitalization)
  Sender: FDA-Public Use
  Company Number: BR-ABBOTT-11P-020-0708986-00

PATIENT
  Sex: Male
  Weight: 62 kg

DRUGS (6)
  1. ATENOLOL [Concomitant]
     Indication: HYPERTENSION
     Route: 048
  2. SIMVASTATIN [Concomitant]
     Indication: PROPHYLAXIS
  3. ATENOLOL [Concomitant]
     Indication: PROPHYLAXIS
  4. ASPIRIN [Concomitant]
     Indication: ANTICOAGULANT THERAPY
     Dosage: (INFANTIL)
  5. HUMIRA [Suspect]
     Indication: RHEUMATOID ARTHRITIS
  6. SIMVASTATIN [Concomitant]
     Indication: HYPERTENSION
     Route: 048

REACTIONS (5)
  - CHOLELITHIASIS [None]
  - MUSCULOSKELETAL PAIN [None]
  - LUNG INFECTION [None]
  - PNEUMOTHORAX [None]
  - PAIN [None]
